FAERS Safety Report 5810326-2 (Version None)
Quarter: 2008Q3

REPORT INFORMATION
  Report Type: 
  Country: None (occurrence: None)
  Receive Date: 20080715
  Receipt Date: 20080602
  Transmission Date: 20090109
  Serious: No
  Sender: FDA-Public Use
  Company Number: A0722136A

PATIENT
  Age: 61 Year
  Sex: Female
  Weight: 82.3 kg

DRUGS (5)
  1. IMITREX [Suspect]
     Indication: MIGRAINE
     Dosage: 50MG VARIABLE DOSE
     Route: 048
     Dates: start: 19990101
  2. SYNTHROID [Suspect]
     Indication: DRUG USE FOR UNKNOWN INDICATION
  3. LOPRESSOR [Concomitant]
  4. DEPAKOTE [Concomitant]
  5. WELLBUTRIN [Concomitant]

REACTIONS (4)
  - FEELING ABNORMAL [None]
  - MUSCULOSKELETAL STIFFNESS [None]
  - PHARMACEUTICAL PRODUCT COMPLAINT [None]
  - TREMOR [None]
